FAERS Safety Report 6701771-1 (Version None)
Quarter: 2010Q2

REPORT INFORMATION
  Report Type: 
  Country: None (occurrence: None)
  Receive Date: 20100429
  Receipt Date: 20100426
  Transmission Date: 20101027
  Serious: Yes (Death)
  Sender: FDA-Public Use
  Company Number: PT-CELGENEUS-130-C5013-10021773

PATIENT
  Sex: Male
  Weight: 71 kg

DRUGS (18)
  1. THALIDOMIDE [Suspect]
     Indication: MULTIPLE MYELOMA
     Route: 048
     Dates: start: 20090407, end: 20091118
  2. THALIDOMIDE [Suspect]
     Route: 048
     Dates: start: 20090403, end: 20090406
  3. THALIDOMIDE [Suspect]
     Route: 048
     Dates: start: 20090325, end: 20090402
  4. THALIDOMIDE [Suspect]
     Route: 048
     Dates: start: 20091106, end: 20091204
  5. THALIDOMIDE [Suspect]
     Route: 048
     Dates: start: 20091119, end: 20100217
  6. CYCLOPHOSPHAMIDE [Suspect]
     Indication: MULTIPLE MYELOMA
     Route: 051
     Dates: start: 20100106, end: 20100202
  7. CYCLOPHOSPHAMIDE [Suspect]
     Route: 048
     Dates: start: 20091219, end: 20100105
  8. CYCLOPHOSPHAMIDE [Suspect]
     Route: 051
     Dates: start: 20091106, end: 20091204
  9. CYCLOPHOSPHAMIDE [Suspect]
     Route: 051
     Dates: start: 20100210, end: 20100218
  10. DEXAMETHASONE [Suspect]
     Indication: MULTIPLE MYELOMA
     Route: 048
     Dates: start: 20090910, end: 20100218
  11. DEXAMETHASONE [Suspect]
     Route: 048
     Dates: start: 20090423, end: 20090909
  12. EPO [Concomitant]
     Route: 058
  13. FOLIC ACID [Concomitant]
     Route: 048
  14. OMEPRAZOLE [Concomitant]
     Indication: DRUG USE FOR UNKNOWN INDICATION
     Route: 048
  15. SINTROM [Concomitant]
     Indication: ATRIAL FIBRILLATION
     Route: 048
  16. SINTROM [Concomitant]
     Indication: PROPHYLAXIS
  17. PAROXETINE HCL [Concomitant]
     Indication: DEPRESSION
     Route: 065
  18. RISPERIDONE [Concomitant]
     Indication: DEPRESSION
     Route: 065

REACTIONS (1)
  - CARDIO-RESPIRATORY ARREST [None]
